FAERS Safety Report 15034257 (Version 1)
Quarter: 2018Q2

REPORT INFORMATION
  Report Type: Spontaneous
  Country: SE (occurrence: SE)
  Receive Date: 20180620
  Receipt Date: 20180620
  Transmission Date: 20180711
  Serious: Yes (Other)
  Sender: FDA-Public Use
  Company Number: SE-TEVA-2018-SE-908209

PATIENT
  Age: 81 Year
  Sex: Female

DRUGS (24)
  1. SYMBICORT [Concomitant]
     Active Substance: BUDESONIDE\FORMOTEROL FUMARATE DIHYDRATE
     Indication: URINARY TRACT INFECTION
     Route: 065
  2. ALVEDON [Concomitant]
     Active Substance: ACETAMINOPHEN
     Dosage: AS REQUIRED
     Route: 065
  3. ZOLPIDEM [Concomitant]
     Active Substance: ZOLPIDEM\ZOLPIDEM TARTRATE
     Dosage: AS REQUIRED
     Route: 065
  4. KETOCONAZOL [Concomitant]
     Active Substance: KETOCONAZOLE
     Dosage: AS REQUIRED
     Route: 065
  5. INSUMAN [Concomitant]
     Active Substance: INSULIN HUMAN
  6. OMEPRAZOL [Concomitant]
     Active Substance: OMEPRAZOLE
     Dosage: AS REQUIRED
     Route: 065
  7. FURIX RETARD [Concomitant]
     Active Substance: FUROSEMIDE
     Route: 065
  8. LOSARTAN. [Concomitant]
     Active Substance: LOSARTAN
  9. IDOTRIM [Suspect]
     Active Substance: TRIMETHOPRIM
     Route: 065
     Dates: end: 201803
  10. KALCIPOS [Concomitant]
     Active Substance: CALCIUM CARBONATE
     Route: 065
  11. CETIRIZIN [Concomitant]
     Active Substance: CETIRIZINE HYDROCHLORIDE
     Dosage: AS REQUIRED
     Route: 065
  12. OESTRING [Concomitant]
     Active Substance: ESTRADIOL
     Route: 065
  13. NOVORAPID [Concomitant]
     Active Substance: INSULIN ASPART
     Route: 065
  14. METFORMIN [Concomitant]
     Active Substance: METFORMIN HYDROCHLORIDE
     Route: 065
  15. FLUDENT [Concomitant]
     Active Substance: SODIUM FLUORIDE
     Dosage: AS REQUIRED
     Route: 065
  16. BETNOVAT [Concomitant]
     Active Substance: BETAMETHASONE
     Route: 065
  17. TRADOLAN [Concomitant]
     Active Substance: TRAMADOL
     Dosage: AS REQUIRED
     Route: 065
  18. PROPYDERM [Concomitant]
     Dosage: AS REQUIRED
     Route: 065
  19. DIMOR [Concomitant]
     Active Substance: LOPERAMIDE
     Dosage: AS REQUIRED
     Route: 065
  20. ATENOLOL. [Concomitant]
     Active Substance: ATENOLOL
     Route: 065
  21. AMLODIPINE [Suspect]
     Active Substance: AMLODIPINE BESYLATE
     Route: 065
     Dates: end: 201803
  22. MONTELUKAST [Concomitant]
     Active Substance: MONTELUKAST SODIUM
     Route: 065
  23. CORTIKMYK [Concomitant]
     Route: 065
  24. BRICANYL [Concomitant]
     Active Substance: TERBUTALINE SULFATE
     Dosage: AS REQUIRED
     Route: 065

REACTIONS (1)
  - Urticaria [Recovering/Resolving]

NARRATIVE: CASE EVENT DATE: 201803
